FAERS Safety Report 18085126 (Version 1)
Quarter: 2020Q3

REPORT INFORMATION
  Report Type: Spontaneous
  Country: PT (occurrence: PT)
  Receive Date: 20200728
  Receipt Date: 20200728
  Transmission Date: 20201103
  Serious: Yes (Hospitalization, Other)
  Sender: FDA-Public Use
  Company Number: NVSC2020PT209824

PATIENT

DRUGS (2)
  1. BEOVU [Suspect]
     Active Substance: BROLUCIZUMAB-DBLL
     Indication: EYE OEDEMA
  2. BEOVU [Suspect]
     Active Substance: BROLUCIZUMAB-DBLL
     Indication: CATARACT OPERATION
     Dosage: UNK
     Route: 065
     Dates: start: 20200624

REACTIONS (3)
  - Cerebrovascular accident [Unknown]
  - General physical health deterioration [Unknown]
  - Product use in unapproved indication [Unknown]
